FAERS Safety Report 14478102 (Version 1)
Quarter: 2018Q1

REPORT INFORMATION
  Report Type: Report from Study
  Country: US (occurrence: US)
  Receive Date: 20180202
  Receipt Date: 20180202
  Transmission Date: 20180509
  Serious: Yes (Other)
  Sender: FDA-Public Use
  Company Number: US-ROCHE-2061365

PATIENT
  Age: 36 Year
  Sex: Male

DRUGS (1)
  1. ATEZOLIZUMAB. [Suspect]
     Active Substance: ATEZOLIZUMAB
     Indication: ADENOCARCINOMA OF COLON
     Route: 065

REACTIONS (7)
  - Maculopathy [Recovered/Resolved]
  - Autoimmune uveitis [Recovered/Resolved]
  - Retinal vein occlusion [Unknown]
  - Retinal vasculitis [Recovered/Resolved]
  - Pyrexia [Unknown]
  - Retinal haemorrhage [Recovered/Resolved]
  - Mental status changes [Unknown]
